FAERS Safety Report 6195578-4 (Version None)
Quarter: 2009Q2

REPORT INFORMATION
  Report Type: 
  Country: None (occurrence: None)
  Receive Date: 20090519
  Receipt Date: 20090514
  Transmission Date: 20091009
  Serious: Yes (Hospitalization)
  Sender: FDA-Public Use
  Company Number: PHHY2009PE17880

PATIENT
  Sex: Female

DRUGS (4)
  1. DIOVAN HCT [Suspect]
     Indication: HYPERTENSION
     Dosage: 160 MG/25 MG
  2. CLOPIDOGREL [Concomitant]
     Indication: PERIPHERAL VASCULAR DISORDER
     Dosage: DAILY
     Route: 048
  3. DOXIUM [Concomitant]
     Indication: PERIPHERAL VASCULAR DISORDER
     Dosage: TWICE DAILY
     Route: 048
  4. OMEPRAZOLE [Concomitant]
     Dosage: UNK
     Route: 048
     Dates: start: 20080101

REACTIONS (1)
  - BRONCHOPNEUMONIA [None]
